FAERS Safety Report 24281176 (Version 4)
Quarter: 2025Q3

REPORT INFORMATION
  Report Type: Spontaneous
  Country: JP (occurrence: JP)
  Receive Date: 20240904
  Receipt Date: 20250810
  Transmission Date: 20251020
  Serious: Yes (Hospitalization, Other)
  Sender: ALEXION PHARMACEUTICALS
  Company Number: 2024A129713

PATIENT
  Age: 59 Year
  Sex: Male

DRUGS (9)
  1. IMFINZI [Suspect]
     Active Substance: DURVALUMAB
     Indication: Non-small cell lung cancer
     Dosage: 1500 MILLIGRAM, Q3W
  2. IMFINZI [Suspect]
     Active Substance: DURVALUMAB
     Dosage: 1500 MILLIGRAM, Q4W
  3. IMJUDO [Suspect]
     Active Substance: TREMELIMUMAB\TREMELIMUMAB-ACTL
     Indication: Non-small cell lung cancer
     Dosage: 75 MILLIGRAM, Q3W
  4. CARBOPLATIN [Concomitant]
     Active Substance: CARBOPLATIN
     Indication: Non-small cell lung cancer
  5. CARBOPLATIN [Concomitant]
     Active Substance: CARBOPLATIN
     Route: 065
  6. CARBOPLATIN [Concomitant]
     Active Substance: CARBOPLATIN
     Route: 065
  7. PACLITAXEL [Concomitant]
     Active Substance: PACLITAXEL
     Indication: Non-small cell lung cancer
  8. BETAMETHASONE [Concomitant]
     Active Substance: BETAMETHASONE
     Route: 065
  9. BETAMETHASONE [Concomitant]
     Active Substance: BETAMETHASONE
     Route: 065

REACTIONS (6)
  - Syncope [Unknown]
  - Herpes zoster [Unknown]
  - Blood creatinine increased [Unknown]
  - Arthralgia [Unknown]
  - Myalgia [Unknown]
  - Blood creatinine increased [Unknown]
